FAERS Safety Report 24769288 (Version 2)
Quarter: 2024Q4

REPORT INFORMATION
  Report Type: Spontaneous
  Country: SG (occurrence: SG)
  Receive Date: 20241224
  Receipt Date: 20241228
  Transmission Date: 20250115
  Serious: Yes (Death)
  Sender: ROCHE
  Company Number: SG-ROCHE-10000163656

PATIENT
  Age: 48 Year
  Sex: Female

DRUGS (1)
  1. KADCYLA [Suspect]
     Active Substance: ADO-TRASTUZUMAB EMTANSINE
     Indication: Breast cancer metastatic
     Route: 065

REACTIONS (1)
  - Breast cancer [Fatal]

NARRATIVE: CASE EVENT DATE: 20220101
